FAERS Safety Report 4339678-X (Version None)
Quarter: 2004Q1

REPORT INFORMATION
  Report Type: 
  Country: None (occurrence: None)
  Receive Date: 20040329
  Receipt Date: 20031226
  Transmission Date: 20041129
  Serious: No
  Sender: FDA-Public Use
  Company Number: 03P-163-0245745-00

PATIENT
  Age: 64 Year
  Sex: Female
  Weight: 108.8633 kg

DRUGS (8)
  1. HUMIRA [Suspect]
     Indication: RHEUMATOID ARTHRITIS
     Dosage: 40 MG, 1 IN 2 WK, SUBCUTANEOUS
     Route: 058
     Dates: start: 20031223
  2. CELECOXIB [Concomitant]
  3. SULFA [Concomitant]
  4. GLUCOSAMINE [Concomitant]
  5. LOXYBUTYNIN [Concomitant]
  6. RANITIDINE [Concomitant]
  7. FOLIC ACID [Concomitant]
  8. METHOTREXATE SODIUM [Concomitant]

REACTIONS (1)
  - JOINT SWELLING [None]
